FAERS Safety Report 13234651 (Version 2)
Quarter: 2017Q1

REPORT INFORMATION
  Report Type: Spontaneous
  Country: PT (occurrence: PT)
  Receive Date: 20170215
  Receipt Date: 20170323
  Transmission Date: 20170428
  Serious: Yes (Hospitalization)
  Sender: FDA-Public Use
  Company Number: PT-ASTRAZENECA-2017SE14298

PATIENT
  Age: 63 Year
  Sex: Male

DRUGS (4)
  1. FORXIGA [Suspect]
     Active Substance: DAPAGLIFLOZIN
     Route: 048
     Dates: start: 20170116, end: 20170129
  2. ROSUVASTATIN. [Concomitant]
     Active Substance: ROSUVASTATIN
  3. SITAGLIPTIN + METFORMIN [Concomitant]
  4. CLOPIDOGREL [Concomitant]
     Active Substance: CLOPIDOGREL BISULFATE

REACTIONS (1)
  - Diabetic ketoacidosis [Unknown]
